FAERS Safety Report 16745139 (Version 5)
Quarter: 2022Q4

REPORT INFORMATION
  Report Type: Spontaneous
  Country: US (occurrence: US)
  Receive Date: 20190827
  Receipt Date: 20221228
  Transmission Date: 20230113
  Serious: No
  Sender: FDA-Public Use
  Company Number: US-PFIZER INC-2019367400

PATIENT
  Age: 54 Year
  Sex: Female

DRUGS (15)
  1. TOVIAZ [Suspect]
     Active Substance: FESOTERODINE FUMARATE
     Indication: Urinary tract disorder
     Dosage: 8 MG, 2X/DAY
     Route: 048
     Dates: start: 20121212
  2. TOVIAZ [Suspect]
     Active Substance: FESOTERODINE FUMARATE
     Indication: Hypertonic bladder
     Dosage: 8 MG, 1X/DAY
  3. TOVIAZ [Suspect]
     Active Substance: FESOTERODINE FUMARATE
     Indication: Micturition urgency
     Dosage: 16 MG, DAILY
     Route: 048
  4. TOVIAZ [Suspect]
     Active Substance: FESOTERODINE FUMARATE
     Indication: Urge incontinence
  5. TOVIAZ [Suspect]
     Active Substance: FESOTERODINE FUMARATE
     Indication: Nocturia
  6. OXYBUTYNIN [Suspect]
     Active Substance: OXYBUTYNIN
     Indication: Hypertonic bladder
     Dosage: UNK
  7. OXYBUTYNIN [Suspect]
     Active Substance: OXYBUTYNIN
     Indication: Urinary tract disorder
  8. OXYBUTYNIN [Suspect]
     Active Substance: OXYBUTYNIN
     Indication: Nocturia
  9. OXYBUTYNIN [Suspect]
     Active Substance: OXYBUTYNIN
     Indication: Urge incontinence
  10. OXYBUTYNIN [Suspect]
     Active Substance: OXYBUTYNIN
     Indication: Micturition urgency
  11. MYRBETRIQ [Suspect]
     Active Substance: MIRABEGRON
     Indication: Hypertonic bladder
     Dosage: UNK
  12. MYRBETRIQ [Suspect]
     Active Substance: MIRABEGRON
     Indication: Urinary tract disorder
  13. MYRBETRIQ [Suspect]
     Active Substance: MIRABEGRON
     Indication: Micturition urgency
  14. MYRBETRIQ [Suspect]
     Active Substance: MIRABEGRON
     Indication: Urge incontinence
  15. MYRBETRIQ [Suspect]
     Active Substance: MIRABEGRON
     Indication: Nocturia

REACTIONS (2)
  - Treatment failure [Unknown]
  - Off label use [Unknown]

NARRATIVE: CASE EVENT DATE: 20121212
